FAERS Safety Report 18768365 (Version 1)
Quarter: 2021Q1

REPORT INFORMATION
  Report Type: Spontaneous
  Country: US (occurrence: US)
  Receive Date: 20210121
  Receipt Date: 20210121
  Transmission Date: 20210419
  Serious: Yes (Hospitalization, Other)
  Sender: FDA-Public Use
  Company Number: US-PFIZER INC-2021034924

PATIENT
  Age: 84 Year
  Sex: Female
  Weight: 47.63 kg

DRUGS (1)
  1. CHANTIX [Suspect]
     Active Substance: VARENICLINE TARTRATE
     Indication: SMOKING CESSATION THERAPY
     Dosage: UNK
     Dates: end: 201907

REACTIONS (3)
  - Tobacco user [Unknown]
  - Sepsis [Recovered/Resolved]
  - Pelvic fracture [Recovered/Resolved with Sequelae]

NARRATIVE: CASE EVENT DATE: 201907
